FAERS Safety Report 8760356 (Version 1)
Quarter: 2012Q4

REPORT INFORMATION
  Report Type: 
  Country: US (occurrence: US)
  Receive Date: 20120830
  Receipt Date: 20120830
  Transmission Date: 20130627
  Serious: No
  Sender: FDA-Public Use
  Company Number: US-009507513-1208USA009208

PATIENT

DRUGS (1)
  1. IMPLANON [Suspect]
     Indication: CONTRACEPTION
     Dosage: 1 DF, Cyclical
     Route: 059
     Dates: start: 20110511

REACTIONS (2)
  - Oligomenorrhoea [Unknown]
  - Metrorrhagia [Unknown]
